FAERS Safety Report 25440173 (Version 4)
Quarter: 2025Q3

REPORT INFORMATION
  Report Type: Spontaneous
  Country: EU (occurrence: EU)
  Receive Date: 20250616
  Receipt Date: 20250811
  Transmission Date: 20251021
  Serious: No
  Sender: PFIZER
  Company Number: EU-PFIZER INC-PV202500070614

PATIENT
  Age: 14 Year
  Sex: Female
  Weight: 46 kg

DRUGS (2)
  1. GENOTROPIN [Suspect]
     Active Substance: SOMATROPIN
     Indication: Growth hormone deficiency
     Route: 058
     Dates: start: 20230522
  2. LEVOTHYROXINE [Concomitant]
     Active Substance: LEVOTHYROXINE
     Indication: Hypothyroidism
     Dosage: 12 UG, 1X/DAY

REACTIONS (1)
  - Device issue [Unknown]

NARRATIVE: CASE EVENT DATE: 20250101
